FAERS Safety Report 5519887-4 (Version None)
Quarter: 2007Q4

REPORT INFORMATION
  Report Type: 
  Country: None (occurrence: None)
  Receive Date: 20071116
  Receipt Date: 20071009
  Transmission Date: 20080405
  Serious: No
  Sender: FDA-Public Use
  Company Number: A0686686A

PATIENT
  Age: 86 Year
  Sex: Female

DRUGS (4)
  1. COREG CR [Suspect]
     Indication: HYPERTENSION
     Dosage: 20MG PER DAY
     Route: 048
     Dates: start: 20071005
  2. LISINOPRIL [Concomitant]
  3. NORVASC [Concomitant]
  4. LAXATIVE [Concomitant]

REACTIONS (1)
  - CONSTIPATION [None]
